FAERS Safety Report 25980633 (Version 4)
Quarter: 2025Q4

REPORT INFORMATION
  Report Type: Report from Study
  Country: US (occurrence: US)
  Receive Date: 20251030
  Receipt Date: 20251203
  Transmission Date: 20260118
  Serious: No
  Sender: MALLINCKRODT
  Company Number: US-MALLINCKRODT-MNK202506738

PATIENT
  Age: 69 Year
  Sex: Male

DRUGS (5)
  1. CORTICOTROPIN [Suspect]
     Active Substance: CORTICOTROPIN
     Indication: Keratitis interstitial
     Route: 058
     Dates: start: 20251024
  2. CORTICOTROPIN [Suspect]
     Active Substance: CORTICOTROPIN
     Indication: Keratitis
  3. RISPERIDONE [Concomitant]
     Active Substance: RISPERIDONE
     Dosage: UNKNOWN
  4. LOVENOX [Concomitant]
     Active Substance: ENOXAPARIN SODIUM
     Dosage: UNKNOWN
  5. TADALAFIL [Concomitant]
     Active Substance: TADALAFIL
     Dosage: UNKNOWN

REACTIONS (10)
  - Feeling jittery [Not Recovered/Not Resolved]
  - Vision blurred [Not Recovered/Not Resolved]
  - Visual impairment [Unknown]
  - Anxiety [Not Recovered/Not Resolved]
  - Palpitations [Recovered/Resolved]
  - Insomnia [Not Recovered/Not Resolved]
  - Injection site haemorrhage [Unknown]
  - Headache [Recovered/Resolved]
  - Injection site discharge [Unknown]
  - Injection site pain [Unknown]

NARRATIVE: CASE EVENT DATE: 20250101
